FAERS Safety Report 14949113 (Version 1)
Quarter: 2018Q2

REPORT INFORMATION
  Report Type: Spontaneous
  Country: IN (occurrence: IN)
  Receive Date: 20180529
  Receipt Date: 20180529
  Transmission Date: 20180711
  Serious: Yes (Hospitalization)
  Sender: FDA-Public Use
  Company Number: IN-PFIZER INC-2018213665

PATIENT
  Age: 17 Year
  Sex: Female
  Weight: 40.54 kg

DRUGS (17)
  1. LINEZOLID. [Suspect]
     Active Substance: LINEZOLID
     Dosage: UNK, 1X/DAY
     Route: 048
     Dates: start: 20171009
  2. ESOMEPRAZOLE [Concomitant]
     Active Substance: ESOMEPRAZOLE
     Indication: ANTACID THERAPY
     Dosage: UNK
     Dates: start: 20171009
  3. LINEZOLID. [Suspect]
     Active Substance: LINEZOLID
     Indication: PULMONARY TUBERCULOSIS
     Dosage: UNK UNK, DAILY
     Route: 048
     Dates: start: 20171009
  4. DELAMANID [Suspect]
     Active Substance: DELAMANID
     Dosage: UNK, 1X/DAY
     Route: 048
     Dates: start: 20171009
  5. CAPREOMYCIN [Suspect]
     Active Substance: CAPREOMYCIN
     Dosage: UNK, 1X/DAY
     Route: 048
     Dates: start: 20171009
  6. BEDAQUILINE [Suspect]
     Active Substance: BEDAQUILINE
     Indication: PULMONARY TUBERCULOSIS
     Dosage: UNK UNK, DAILY
     Dates: start: 20180205, end: 20180227
  7. BEDAQUILINE [Suspect]
     Active Substance: BEDAQUILINE
     Dosage: UNK UNK, 1X/DAY
     Route: 048
     Dates: start: 20180205, end: 20180227
  8. CLOFAZIMINE [Suspect]
     Active Substance: CLOFAZIMINE
     Indication: PULMONARY TUBERCULOSIS
     Dosage: UNK UNK, DAILY
     Route: 048
     Dates: start: 20171009
  9. CLOFAZIMINE [Suspect]
     Active Substance: CLOFAZIMINE
     Dosage: UNK UNK, 1X/DAY
     Route: 048
     Dates: start: 20171009, end: 20180413
  10. PYRIDOXINE [Concomitant]
     Active Substance: PYRIDOXINE
     Indication: NEUROPATHY PERIPHERAL
     Dosage: UNK
     Dates: start: 20171009
  11. ETHIONAMIDE [Suspect]
     Active Substance: ETHIONAMIDE
     Dosage: UNK, 1X/DAY
     Route: 048
     Dates: start: 20171009
  12. FERROUS SULFATE. [Concomitant]
     Active Substance: FERROUS SULFATE
     Indication: MINERAL SUPPLEMENTATION
     Dosage: UNK
     Dates: start: 20171226
  13. MIRTAZAPINE. [Concomitant]
     Active Substance: MIRTAZAPINE
     Indication: DEPRESSION
     Dosage: UNK
     Dates: start: 20171018
  14. ETHIONAMIDE [Suspect]
     Active Substance: ETHIONAMIDE
     Indication: PULMONARY TUBERCULOSIS
     Dosage: UNK UNK, DAILY
     Route: 048
  15. DELAMANID [Suspect]
     Active Substance: DELAMANID
     Indication: PULMONARY TUBERCULOSIS
     Dosage: UNK UNK, DAILY
     Route: 048
     Dates: start: 20171009
  16. BEDAQUILINE [Suspect]
     Active Substance: BEDAQUILINE
     Dosage: UNK UNK, DAILY
     Route: 048
     Dates: end: 20180413
  17. CAPREOMYCIN [Suspect]
     Active Substance: CAPREOMYCIN
     Indication: PULMONARY TUBERCULOSIS
     Dosage: UNK UNK, DAILY
     Route: 048
     Dates: start: 20171009

REACTIONS (3)
  - Electrocardiogram QT prolonged [Recovered/Resolved]
  - Anaemia [Recovering/Resolving]
  - Electrocardiogram QT prolonged [Unknown]

NARRATIVE: CASE EVENT DATE: 20180227
